FAERS Safety Report 7044364-1 (Version None)
Quarter: 2010Q4

REPORT INFORMATION
  Report Type: 
  Country: None (occurrence: None)
  Receive Date: 20101014
  Receipt Date: 20100106
  Transmission Date: 20110411
  Serious: No
  Sender: FDA-Public Use
  Company Number: US-PFIZER INC-2010002940

PATIENT
  Sex: Male

DRUGS (1)
  1. CLEOCIN [Suspect]
     Indication: INFECTION
     Dosage: 105 MG, 3X/DAY
     Route: 048
     Dates: start: 20100105

REACTIONS (3)
  - DRUG INTOLERANCE [None]
  - DYSPHAGIA [None]
  - VOMITING [None]
